FAERS Safety Report 23874098 (Version 1)
Quarter: 2024Q2

REPORT INFORMATION
  Report Type: Spontaneous
  Country: US (occurrence: US)
  Receive Date: 20240520
  Receipt Date: 20240520
  Transmission Date: 20240716
  Serious: No
  Sender: FDA-Public Use
  Company Number: US-CIPLA LTD.-2024US02298

PATIENT

DRUGS (2)
  1. ALBUTEROL [Suspect]
     Active Substance: ALBUTEROL
     Indication: Asthma
     Dosage: UNK, PRN (2 PUFFS (180 MCG) 6 TIMES A DAY OR AS NEEDED) (29-JAN-2024 OR 01-FEB-2024)
     Dates: start: 2024
  2. CIMETIDINE [Concomitant]
     Active Substance: CIMETIDINE
     Indication: Migraine
     Dosage: 400 MILLIGRAM, QD
     Route: 065
     Dates: start: 2020

REACTIONS (3)
  - Intentional product use issue [Unknown]
  - Incorrect dose administered by device [Unknown]
  - Device mechanical issue [Unknown]

NARRATIVE: CASE EVENT DATE: 20240209
